FAERS Safety Report 10338719 (Version 3)
Quarter: 2014Q3

REPORT INFORMATION
  Report Type: Not Available
  Country: PT (occurrence: PT)
  Receive Date: 20140724
  Receipt Date: 20140905
  Transmission Date: 20150326
  Serious: Yes (Disabling, Other)
  Sender: FDA-Public Use
  Company Number: PT-BEH-2014043923

PATIENT
  Age: 34 Year
  Sex: Female

DRUGS (2)
  1. PRIVIGEN [Suspect]
     Active Substance: HUMAN IMMUNOGLOBULIN G
     Indication: MYASTHENIA GRAVIS
     Dosage: 15 G (100 MG/ML) IN TOTAL OF BOTH BATCH NUMBERS
     Route: 042
     Dates: start: 20140619, end: 20140623
  2. PRIVIGEN [Suspect]
     Active Substance: HUMAN IMMUNOGLOBULIN G
     Dosage: 15 G IN TOTAL OF BOTH BATCH NUMBERS
     Route: 042
     Dates: start: 20140619, end: 20140623

REACTIONS (8)
  - Speech disorder [Recovered/Resolved]
  - Asthenia [Recovered/Resolved]
  - Eyelid ptosis [Recovered/Resolved]
  - Drug ineffective for unapproved indication [Unknown]
  - Off label use [Unknown]
  - Dysphagia [Recovered/Resolved]
  - Condition aggravated [Recovered/Resolved]
  - Product quality issue [Unknown]

NARRATIVE: CASE EVENT DATE: 20140619
